FAERS Safety Report 21176397 (Version 1)
Quarter: 2022Q3

REPORT INFORMATION
  Report Type: Spontaneous
  Country: US (occurrence: None)
  Receive Date: 20220804
  Receipt Date: 20220804
  Transmission Date: 20221027
  Serious: Yes (Other)
  Sender: FDA-Public Use
  Company Number: None

PATIENT
  Age: 86 Year
  Sex: Female
  Weight: 47.25 kg

DRUGS (1)
  1. EVUSHELD [Suspect]
     Active Substance: CILGAVIMAB\TIXAGEVIMAB
     Indication: Immunodeficiency
     Dosage: OTHER STRENGTH : PER PROTOCOL TOT -;?
     Route: 030
     Dates: start: 20220801, end: 20220801

REACTIONS (4)
  - Fatigue [None]
  - Vomiting [None]
  - Nausea [None]
  - Arthralgia [None]

NARRATIVE: CASE EVENT DATE: 20220801
